FAERS Safety Report 10700199 (Version 2)
Quarter: 2015Q2

REPORT INFORMATION
  Report Type: Spontaneous
  Country: US (occurrence: US)
  Receive Date: 20150109
  Receipt Date: 20150414
  Transmission Date: 20150821
  Serious: No
  Sender: FDA-Public Use
  Company Number: US-PFIZER INC-2015004975

PATIENT
  Age: 80 Year
  Sex: Male
  Weight: 62 kg

DRUGS (1)
  1. SUTENT [Suspect]
     Active Substance: SUNITINIB MALATE
     Indication: RENAL CANCER
     Dosage: 50 MG, ONCE DAILY, CYCLIC (24 DAYS THEN OFF FOR 14 DAYS)

REACTIONS (5)
  - Hallucination, auditory [Unknown]
  - Feeling abnormal [Unknown]
  - Amnesia [Unknown]
  - Hallucination [Unknown]
  - Pain [Not Recovered/Not Resolved]
